FAERS Safety Report 15735072 (Version 1)
Quarter: 2018Q4

REPORT INFORMATION
  Report Type: Spontaneous
  Country: AU (occurrence: AU)
  Receive Date: 20181218
  Receipt Date: 20181218
  Transmission Date: 20190205
  Serious: Yes (Other)
  Sender: FDA-Public Use
  Company Number: AU-BIOVITRUM-2017AU0567

PATIENT
  Age: 21 Year
  Sex: Female
  Weight: 52 kg

DRUGS (3)
  1. ORFADIN [Suspect]
     Active Substance: NITISINONE
     Indication: ALKAPTONURIA
  2. ORFADIN [Suspect]
     Active Substance: NITISINONE
  3. ORFADIN [Suspect]
     Active Substance: NITISINONE

REACTIONS (9)
  - Eye inflammation [Recovered/Resolved]
  - Blepharitis [Recovered/Resolved]
  - Photophobia [Recovered/Resolved]
  - Vision blurred [Recovered/Resolved]
  - Eye irritation [Recovered/Resolved]
  - Off label use [Unknown]
  - Hypermetropia [Recovered/Resolved]
  - Corneal deposits [Recovered/Resolved]
  - Amino acid level increased [Recovered/Resolved]
